FAERS Safety Report 6259518-1 (Version None)
Quarter: 2009Q3

REPORT INFORMATION
  Report Type: 
  Country: None (occurrence: None)
  Receive Date: 20090708
  Receipt Date: 20090703
  Transmission Date: 20100115
  Serious: Yes (Other)
  Sender: FDA-Public Use
  Company Number: FR-BRISTOL-MYERS SQUIBB COMPANY-14689574

PATIENT

DRUGS (1)
  1. SUSTIVA [Suspect]

REACTIONS (1)
  - VESTIBULAR NEURONITIS [None]
